FAERS Safety Report 23330123 (Version 4)
Quarter: 2025Q1

REPORT INFORMATION
  Report Type: Spontaneous
  Country: BR (occurrence: BR)
  Receive Date: 20231222
  Receipt Date: 20250310
  Transmission Date: 20250409
  Serious: Yes (Hospitalization, Other)
  Sender: CELLTRION
  Company Number: BR-CELLTRION INC.-2023BR024280

PATIENT

DRUGS (8)
  1. INFLIXIMAB [Suspect]
     Active Substance: INFLIXIMAB
     Indication: Crohn^s disease
     Route: 042
     Dates: start: 20221109
  2. INFLIXIMAB [Suspect]
     Active Substance: INFLIXIMAB
     Route: 042
     Dates: start: 20231014
  3. INFLIXIMAB [Suspect]
     Active Substance: INFLIXIMAB
     Route: 042
     Dates: start: 20221109
  4. INFLIXIMAB [Suspect]
     Active Substance: INFLIXIMAB
     Route: 042
     Dates: start: 20250211
  5. PANTOPRAZOLE [Concomitant]
     Active Substance: PANTOPRAZOLE
     Indication: Hyperchlorhydria
     Route: 048
  6. DIMETHICONE\METOCLOPRAMIDE\PEPSIN [Concomitant]
     Active Substance: DIMETHICONE\METOCLOPRAMIDE\PEPSIN
  7. LOPERAMIDE [Concomitant]
     Active Substance: LOPERAMIDE
     Indication: Diarrhoea
     Route: 048
  8. LEVOTHYROXINE [Concomitant]
     Active Substance: LEVOTHYROXINE
     Indication: Hypothyroidism
     Route: 048

REACTIONS (15)
  - Fistula [Recovering/Resolving]
  - Fistula discharge [Unknown]
  - Gastrointestinal neoplasm [Unknown]
  - Malignant polyp [Unknown]
  - Surgery [Unknown]
  - Postoperative wound infection [Recovered/Resolved]
  - Dehydration [Unknown]
  - Malnutrition [Unknown]
  - Procedural pain [Recovering/Resolving]
  - Skin irritation [Unknown]
  - Asthenia [Unknown]
  - Diarrhoea [Unknown]
  - Influenza [Recovered/Resolved]
  - Intentional dose omission [Unknown]
  - Therapeutic product effect incomplete [Unknown]

NARRATIVE: CASE EVENT DATE: 20231111
